FAERS Safety Report 7765384-5 (Version None)
Quarter: 2011Q3

REPORT INFORMATION
  Report Type: 
  Country: None (occurrence: None)
  Receive Date: 20110921
  Receipt Date: 20110916
  Transmission Date: 20111222
  Serious: Yes (Disabling)
  Sender: FDA-Public Use
  Company Number: US-MERCK-1109USA01911

PATIENT
  Age: 65 Year
  Sex: Female

DRUGS (2)
  1. FOSAMAX [Suspect]
     Route: 048
     Dates: start: 20010101, end: 20110101
  2. FOSAMAX [Suspect]
     Route: 048
     Dates: start: 20010101, end: 20110101

REACTIONS (2)
  - FEMUR FRACTURE [None]
  - LOW TURNOVER OSTEOPATHY [None]
